FAERS Safety Report 5715834-0 (Version None)
Quarter: 2008Q2

REPORT INFORMATION
  Report Type: 
  Country: None (occurrence: None)
  Receive Date: 20080424
  Receipt Date: 20080417
  Transmission Date: 20081010
  Serious: Yes (Hospitalization)
  Sender: FDA-Public Use
  Company Number: US-ALLERGAN-0803410US

PATIENT
  Sex: Female
  Weight: 57.596 kg

DRUGS (2)
  1. BOTOX [Suspect]
     Indication: TORTICOLLIS
     Dosage: 200 UNITS, SINGLE
     Route: 030
     Dates: start: 20060929, end: 20060929
  2. BOTOX [Suspect]
     Dosage: 200 UNITS, SINGLE
     Route: 030
     Dates: start: 20060519, end: 20060519

REACTIONS (10)
  - CHILLS [None]
  - CYSTITIS INTERSTITIAL [None]
  - DIARRHOEA [None]
  - GASTROENTERITIS VIRAL [None]
  - INFLUENZA LIKE ILLNESS [None]
  - MUSCULAR WEAKNESS [None]
  - NAUSEA [None]
  - PYREXIA [None]
  - VERTIGO [None]
  - VOMITING [None]
